FAERS Safety Report 4743338-0 (Version None)
Quarter: 2005Q3

REPORT INFORMATION
  Report Type: 
  Country: None (occurrence: None)
  Receive Date: 20050809
  Receipt Date: 20050727
  Transmission Date: 20060218
  Serious: Yes (Hospitalization)
  Sender: FDA-Public Use
  Company Number: CTP20050014

PATIENT
  Age: 59 Year
  Sex: Female
  Weight: 90 kg

DRUGS (6)
  1. CITALOPRAM 10 MG DR. REDDY [Suspect]
     Indication: DEPRESSION
     Dosage: 10 MG ONCE PO
     Route: 048
     Dates: start: 20050721, end: 20050721
  2. LORAZEPAM [Suspect]
     Indication: DEPRESSION
     Dosage: 0.5 MG DAILY PO
     Route: 048
     Dates: start: 20050101
  3. LEVOTHYROXINE [Concomitant]
  4. PRILOSEC [Concomitant]
  5. NEXIUM [Concomitant]
  6. FOSAMAX [Concomitant]

REACTIONS (10)
  - AGITATION [None]
  - ANXIETY [None]
  - BLOOD PRESSURE SYSTOLIC INCREASED [None]
  - CHEST PAIN [None]
  - HEAD DISCOMFORT [None]
  - INSOMNIA [None]
  - NAUSEA [None]
  - PALPITATIONS [None]
  - PHARYNGEAL HYPOAESTHESIA [None]
  - SENSATION OF BLOOD FLOW [None]
